FAERS Safety Report 6936770-8 (Version None)
Quarter: 2010Q3

REPORT INFORMATION
  Report Type: 
  Country: None (occurrence: None)
  Receive Date: 20100818
  Receipt Date: 20100810
  Transmission Date: 20110219
  Serious: Yes (Other)
  Sender: FDA-Public Use
  Company Number: 016965

PATIENT
  Age: 59 Year
  Sex: Female

DRUGS (3)
  1. KEPPRA [Suspect]
     Dosage: (UNKNOWN DOSE)   (1500 MG BID)
     Dates: start: 20100301, end: 20100501
  2. KEPPRA [Suspect]
     Dosage: (UNKNOWN DOSE)   (1500 MG BID)
     Dates: start: 20100501
  3. TRILEPTAL [Concomitant]

REACTIONS (1)
  - LEUKOPENIA [None]
